FAERS Safety Report 21961452 (Version 1)
Quarter: 2023Q1

REPORT INFORMATION
  Report Type: Other
  Country: US (occurrence: None)
  Receive Date: 20230207
  Receipt Date: 20230207
  Transmission Date: 20230417
  Serious: Yes (Other)
  Sender: FDA-Public Use
  Company Number: US-ROCHE-3278669

PATIENT
  Age: 53 Year
  Sex: Female

DRUGS (37)
  1. XOLAIR [Suspect]
     Active Substance: OMALIZUMAB
     Indication: Asthma
     Dosage: 300 MG SUBCUTANEOUSLY EVERY 2 WEEKS
     Route: 058
     Dates: start: 20140422
  2. XOLAIR [Suspect]
     Active Substance: OMALIZUMAB
  3. XOLAIR [Suspect]
     Active Substance: OMALIZUMAB
  4. XOLAIR [Suspect]
     Active Substance: OMALIZUMAB
     Route: 058
  5. XOLAIR [Suspect]
     Active Substance: OMALIZUMAB
  6. XOLAIR [Suspect]
     Active Substance: OMALIZUMAB
  7. XOLAIR [Suspect]
     Active Substance: OMALIZUMAB
     Route: 058
  8. XOLAIR [Suspect]
     Active Substance: OMALIZUMAB
  9. XOLAIR [Suspect]
     Active Substance: OMALIZUMAB
  10. ACYCLOVIR [Concomitant]
     Active Substance: ACYCLOVIR
  11. ADVAIR DISKUS [Concomitant]
     Active Substance: FLUTICASONE PROPIONATE\SALMETEROL XINAFOATE
  12. ALLEGRA-D [Concomitant]
     Active Substance: FEXOFENADINE HYDROCHLORIDE\PSEUDOEPHEDRINE HYDROCHLORIDE
  13. AZELASTINE [Concomitant]
     Active Substance: AZELASTINE
  14. BENADRYL ALLERGY [Concomitant]
     Active Substance: DIPHENHYDRAMINE HYDROCHLORIDE
  15. CEFDINIR [Concomitant]
     Active Substance: CEFDINIR
  16. CHLORTHALIDONE [Concomitant]
     Active Substance: CHLORTHALIDONE
  17. CLARITIN [Concomitant]
     Active Substance: LORATADINE
  18. EPINEPHRINE [Concomitant]
     Active Substance: EPINEPHRINE
  19. FAMOTIDINE [Concomitant]
     Active Substance: FAMOTIDINE
  20. HYDROXYZINE [Concomitant]
     Active Substance: HYDROXYZINE HYDROCHLORIDE
  21. IPRATROPIUM [Concomitant]
     Active Substance: IPRATROPIUM
  22. ALBUTEROL [Concomitant]
     Active Substance: ALBUTEROL
  23. LEVALBUTEROL [Concomitant]
     Active Substance: LEVALBUTEROL
  24. MONTELUKAST [Concomitant]
     Active Substance: MONTELUKAST SODIUM
  25. MUPIROCIN [Concomitant]
     Active Substance: MUPIROCIN
  26. PREDNISONE [Concomitant]
     Active Substance: PREDNISONE
  27. PROAIR HFA [Concomitant]
     Active Substance: ALBUTEROL SULFATE
  28. RIZATRIPTAN [Concomitant]
     Active Substance: RIZATRIPTAN
  29. TERBUTALINE [Concomitant]
     Active Substance: TERBUTALINE
  30. ZADITOR [Concomitant]
     Active Substance: KETOTIFEN FUMARATE
  31. ZOVIRAX [Concomitant]
     Active Substance: ACYCLOVIR
  32. ASMANEX [Concomitant]
     Active Substance: MOMETASONE FUROATE
  33. ATARAX [Concomitant]
     Active Substance: HYDROXYZINE HYDROCHLORIDE
  34. EPIPEN [Concomitant]
     Active Substance: EPINEPHRINE
  35. KETOTIFEN FUMARATE [Concomitant]
     Active Substance: KETOTIFEN FUMARATE
  36. OMNICEF [Concomitant]
     Active Substance: CEFDINIR
  37. ZYRTEC [Concomitant]
     Active Substance: CETIRIZINE HYDROCHLORIDE

REACTIONS (5)
  - Hiatus hernia [Unknown]
  - Idiopathic urticaria [Unknown]
  - Arthralgia [Unknown]
  - Anaphylactic reaction [Unknown]
  - Nerve compression [Unknown]

NARRATIVE: CASE EVENT DATE: 20210423
